FAERS Safety Report 21450621 (Version 1)
Quarter: 2022Q4

REPORT INFORMATION
  Report Type: Spontaneous
  Country: PL (occurrence: None)
  Receive Date: 20221013
  Receipt Date: 20221013
  Transmission Date: 20230113
  Serious: Yes (Other)
  Sender: FDA-Public Use
  Company Number: 2022A337886

PATIENT
  Age: 86 Year
  Sex: Female

DRUGS (9)
  1. OMEPRAZOLE [Suspect]
     Active Substance: OMEPRAZOLE
     Indication: Product used for unknown indication
     Route: 065
  2. ROSUVASTATIN [Suspect]
     Active Substance: ROSUVASTATIN
     Indication: Product used for unknown indication
     Route: 065
  3. RUXOLITINIB [Suspect]
     Active Substance: RUXOLITINIB
     Indication: Primary myelofibrosis
     Dosage: UNK
     Route: 065
     Dates: start: 202209
  4. RUXOLITINIB [Suspect]
     Active Substance: RUXOLITINIB
     Indication: Primary myelofibrosis
     Dosage: 40 MG, QD (2X 20 MG)
     Route: 065
     Dates: start: 202205
  5. RUXOLITINIB [Suspect]
     Active Substance: RUXOLITINIB
     Indication: Primary myelofibrosis
     Dosage: 20 MG, QD (2X 10 MG)
     Route: 065
     Dates: start: 202208
  6. ROPINIROLE [Concomitant]
     Active Substance: ROPINIROLE
     Indication: Product used for unknown indication
     Route: 065
  7. HYDROXYUREA [Concomitant]
     Active Substance: HYDROXYUREA
     Indication: Product used for unknown indication
     Route: 065
  8. SERTRALINE [Concomitant]
     Active Substance: SERTRALINE HYDROCHLORIDE
     Indication: Product used for unknown indication
     Route: 065
  9. ACARD [Concomitant]
     Indication: Product used for unknown indication
     Route: 065

REACTIONS (29)
  - Primary myelofibrosis [Unknown]
  - Neutrophil count increased [Unknown]
  - Basophil percentage increased [Unknown]
  - Neutrophil percentage increased [Unknown]
  - Osteopenia [Unknown]
  - Nodule [Unknown]
  - Lymphocyte percentage decreased [Unknown]
  - Blood creatinine increased [Unknown]
  - Leukocytosis [Unknown]
  - Asthenia [Unknown]
  - Basophil count increased [Unknown]
  - Splenomegaly [Recovering/Resolving]
  - Red cell distribution width increased [Unknown]
  - Mean cell volume increased [Unknown]
  - Blast cells present [Unknown]
  - Blood uric acid increased [Unknown]
  - Weight decreased [Recovered/Resolved]
  - Night sweats [Recovered/Resolved]
  - Monocyte percentage decreased [Unknown]
  - Creatinine renal clearance decreased [Unknown]
  - White blood cell count increased [Unknown]
  - Red blood cell count decreased [Unknown]
  - Pyrexia [Recovered/Resolved]
  - Blood lactate dehydrogenase increased [Unknown]
  - Cognitive disorder [Unknown]
  - Gamma-glutamyltransferase increased [Unknown]
  - Transaminases increased [Unknown]
  - Glomerular filtration rate decreased [Unknown]
  - Inappropriate schedule of product administration [Unknown]

NARRATIVE: CASE EVENT DATE: 20210901
